FAERS Safety Report 20705316 (Version 1)
Quarter: 2022Q2

REPORT INFORMATION
  Report Type: Spontaneous
  Country: US (occurrence: US)
  Receive Date: 20220413
  Receipt Date: 20220413
  Transmission Date: 20220721
  Serious: No
  Sender: FDA-Public Use
  Company Number: US-PFIZER INC-202101753306

PATIENT
  Age: 58 Year
  Sex: Male

DRUGS (1)
  1. INLYTA [Suspect]
     Active Substance: AXITINIB
     Dosage: 5 MG
     Dates: start: 20211128

REACTIONS (14)
  - Hyperhidrosis [Unknown]
  - Chills [Unknown]
  - Flushing [Unknown]
  - Tenderness [Unknown]
  - Paraesthesia [Unknown]
  - Hypoaesthesia [Unknown]
  - Confusional state [Unknown]
  - Anxiety [Unknown]
  - Dry eye [Unknown]
  - Vision blurred [Unknown]
  - Oropharyngeal pain [Unknown]
  - Nasal congestion [Unknown]
  - Insomnia [Unknown]
  - Headache [Unknown]

NARRATIVE: CASE EVENT DATE: 20211128
